FAERS Safety Report 6570039-9 (Version None)
Quarter: 2010Q1

REPORT INFORMATION
  Report Type: 
  Country: None (occurrence: None)
  Receive Date: 20100204
  Receipt Date: 20100125
  Transmission Date: 20100710
  Serious: Yes (Other)
  Sender: FDA-Public Use
  Company Number: CH-ROCHE-681344

PATIENT
  Age: 68 Year
  Sex: Female

DRUGS (10)
  1. XELODA [Suspect]
     Indication: BREAST CANCER
     Route: 065
     Dates: start: 20050401, end: 20050801
  2. XELODA [Suspect]
     Route: 065
     Dates: end: 20091101
  3. TAXOTERE [Concomitant]
     Dates: start: 20050801, end: 20060101
  4. NAVELBINE [Concomitant]
     Dates: start: 20050801, end: 20060101
  5. FEMARA [Concomitant]
     Dates: start: 20010901
  6. AREDIA [Concomitant]
     Dates: start: 20010901
  7. ZOMETA [Concomitant]
     Dates: start: 20010901
  8. CAELYX [Concomitant]
     Dates: start: 20060101, end: 20060201
  9. GEMZAR [Concomitant]
     Dates: start: 20060101, end: 20060201
  10. ENDOXAN [Concomitant]
     Dates: end: 20091101

REACTIONS (2)
  - MALIGNANT NEOPLASM PROGRESSION [None]
  - PALMAR-PLANTAR ERYTHRODYSAESTHESIA SYNDROME [None]
